FAERS Safety Report 8243096-1 (Version None)
Quarter: 2012Q1

REPORT INFORMATION
  Report Type: 
  Country: None (occurrence: None)
  Receive Date: 20120329
  Receipt Date: 20110425
  Transmission Date: 20120608
  Serious: No
  Sender: FDA-Public Use
  Company Number: US-MYLANLABS-2011S1008408

PATIENT
  Age: 61 Year
  Sex: Female

DRUGS (2)
  1. PULMICORT [Concomitant]
     Indication: ASTHMA
     Route: 055
  2. ALBUTEROL SULFATE [Suspect]
     Indication: ASTHMA
     Dosage: PRN
     Route: 055

REACTIONS (1)
  - THROAT IRRITATION [None]
